FAERS Safety Report 21562003 (Version 4)
Quarter: 2022Q4

REPORT INFORMATION
  Report Type: Spontaneous
  Country: PL (occurrence: PL)
  Receive Date: 20221107
  Receipt Date: 20221130
  Transmission Date: 20230112
  Serious: Yes (Hospitalization, Other)
  Sender: FDA-Public Use
  Company Number: PL-ARISTO PHARMA-PARA202210202

PATIENT
  Age: 30 Year
  Sex: Female

DRUGS (8)
  1. ACETAMINOPHEN [Suspect]
     Active Substance: ACETAMINOPHEN
     Indication: Spinal pain
     Dosage: UNK, START TWO DAYS BEFORE THE SYMPTOMS APPEARED
     Route: 048
  2. ACETAMINOPHEN [Suspect]
     Active Substance: ACETAMINOPHEN
     Indication: Neck pain
  3. ACETAMINOPHEN [Suspect]
     Active Substance: ACETAMINOPHEN
     Indication: Post-traumatic pain
  4. ETOFENAMATE [Suspect]
     Active Substance: ETOFENAMATE
     Indication: Spinal pain
     Dosage: UNK, AREA OF THE NECK
     Route: 061
  5. ETOFENAMATE [Suspect]
     Active Substance: ETOFENAMATE
     Indication: Neck pain
  6. ETOFENAMATE [Suspect]
     Active Substance: ETOFENAMATE
     Indication: Post-traumatic pain
  7. METAMIZOLE SODIUM [Suspect]
     Active Substance: METAMIZOLE SODIUM
     Indication: Product used for unknown indication
     Dosage: UNK
     Route: 065
  8. ASPIRIN [Suspect]
     Active Substance: ASPIRIN
     Indication: Product used for unknown indication
     Dosage: UNK
     Route: 065

REACTIONS (2)
  - Symmetrical drug-related intertriginous and flexural exanthema [Recovered/Resolved]
  - Urticaria [Unknown]
